FAERS Safety Report 5129383-4 (Version None)
Quarter: 2006Q4

REPORT INFORMATION
  Report Type: 
  Country: None (occurrence: None)
  Receive Date: 20061012
  Receipt Date: 20060929
  Transmission Date: 20070319
  Serious: Yes (Other)
  Sender: FDA-Public Use
  Company Number: 2006117165

PATIENT
  Age: 76 Year
  Sex: Male

DRUGS (7)
  1. VIAGRA [Suspect]
     Indication: ERECTILE DYSFUNCTION
     Dosage: (50 MG, AS NECESSARY), ORAL
     Route: 048
     Dates: end: 20060101
  2. WARFARIN SODIUM [Concomitant]
  3. ASPIRIN [Concomitant]
  4. LOSEC (OMEPRAZOLE) [Concomitant]
  5. LINATIL (ENALAPRIL MALEATE) [Concomitant]
  6. SOTALOL HCL [Concomitant]
  7. SIMVASTATIN [Concomitant]

REACTIONS (2)
  - BLINDNESS TRANSIENT [None]
  - BLINDNESS UNILATERAL [None]
